FAERS Safety Report 8569874 (Version 2)
Quarter: 2012Q4

REPORT INFORMATION
  Report Type: 
  Country: US (occurrence: US)
  Receive Date: 20120518
  Receipt Date: 20120911
  Transmission Date: 20130627
  Serious: No
  Sender: FDA-Public Use
  Company Number: US-ASTRAZENECA-2012SE18536

PATIENT
  Age: 68 Year
  Sex: Female

DRUGS (1)
  1. ATACAND [Suspect]
     Indication: CEREBROVASCULAR ACCIDENT
     Route: 048

REACTIONS (7)
  - Bronchitis [Unknown]
  - Amnesia [Unknown]
  - Stress [Unknown]
  - Adverse drug reaction [Unknown]
  - Hypertension [Unknown]
  - Off label use [Unknown]
  - Intentional drug misuse [Unknown]
